FAERS Safety Report 6061562-4 (Version None)
Quarter: 2009Q1

REPORT INFORMATION
  Report Type: 
  Country: None (occurrence: None)
  Receive Date: 20090130
  Receipt Date: 20090130
  Transmission Date: 20090719
  Serious: Yes (Other)
  Sender: FDA-Public Use
  Company Number: None

PATIENT
  Age: 36 Year
  Sex: Female
  Weight: 89.8122 kg

DRUGS (1)
  1. VENTOLIN HFA [Suspect]
     Indication: ASTHMA
     Dosage: 1 INHALATION 1 INHAL
     Route: 055
     Dates: start: 20090129, end: 20090129

REACTIONS (3)
  - PRURITUS [None]
  - SWOLLEN TONGUE [None]
  - TONGUE DISORDER [None]
